FAERS Safety Report 16968473 (Version 2)
Quarter: 2020Q1

REPORT INFORMATION
  Report Type: Report from Study
  Country: None (occurrence: US)
  Receive Date: 20191029
  Receipt Date: 20200102
  Transmission Date: 20200409
  Serious: Yes (Hospitalization)
  Sender: FDA-Public Use
  Company Number: US-ABBVIE-19K-163-2975628-00

PATIENT
  Age: 72 Year
  Sex: Female
  Weight: 50.85 kg

DRUGS (2)
  1. HUMIRA [Suspect]
     Active Substance: ADALIMUMAB
     Indication: COLITIS ULCERATIVE
     Route: 058
     Dates: end: 20190909
  2. HUMIRA [Suspect]
     Active Substance: ADALIMUMAB
     Indication: CROHN^S DISEASE
     Route: 058
     Dates: start: 20191102

REACTIONS (8)
  - Crohn^s disease [Recovering/Resolving]
  - Malaise [Unknown]
  - Colitis ulcerative [Unknown]
  - Nausea [Recovered/Resolved]
  - Bladder prolapse [Unknown]
  - Vomiting [Recovered/Resolved]
  - Gastrointestinal infection [Recovered/Resolved]
  - Dehydration [Unknown]

NARRATIVE: CASE EVENT DATE: 201910
